FAERS Safety Report 5082977-7 (Version None)
Quarter: 2006Q3

REPORT INFORMATION
  Report Type: 
  Country: None (occurrence: None)
  Receive Date: 20060720
  Receipt Date: 20060428
  Transmission Date: 20061208
  Serious: Yes (Other)
  Sender: FDA-Public Use
  Company Number: 2006058398

PATIENT
  Age: 51 Year
  Sex: Male
  Weight: 90.7194 kg

DRUGS (2)
  1. CELEBREX [Suspect]
     Indication: ARTHRALGIA
     Dosage: 200 MG (100 MG,2 IN 1 D)
     Dates: start: 19990401
  2. CELEBREX [Suspect]
     Indication: BACK PAIN
     Dosage: 200 MG (100 MG,2 IN 1 D)
     Dates: start: 19990401

REACTIONS (3)
  - GAIT DISTURBANCE [None]
  - PAIN [None]
  - SILENT MYOCARDIAL INFARCTION [None]
